FAERS Safety Report 7814248 (Version 2)
Quarter: 2013Q1

REPORT INFORMATION
  Report Type: Report from Study
  Country: FR (occurrence: FR)
  Receive Date: 20110216
  Receipt Date: 20130308
  Transmission Date: 20140127
  Serious: Yes (Hospitalization)
  Sender: FDA-Public Use
  Company Number: FR-JNJFOC-20090302574

PATIENT
  Age: 30 Year
  Sex: Female
  Weight: 48 kg

DRUGS (4)
  1. INFLIXIMAB [Suspect]
     Indication: CROHN^S DISEASE
     Route: 042
     Dates: start: 20071218
  2. INFLIXIMAB [Suspect]
     Indication: CROHN^S DISEASE
     Route: 042
     Dates: start: 20080102
  3. PENTASA [Concomitant]
     Dates: start: 200803
  4. OROKEN [Concomitant]
     Indication: ABDOMINAL ABSCESS
     Dates: start: 20080527, end: 20080707

REACTIONS (3)
  - Intestinal resection [Unknown]
  - Anxiety [Recovered/Resolved]
  - Abdominal abscess [Unknown]
